FAERS Safety Report 6414172-0 (Version None)
Quarter: 2009Q4

REPORT INFORMATION
  Report Type: 
  Country: None (occurrence: None)
  Receive Date: 20091026
  Receipt Date: 20091012
  Transmission Date: 20100525
  Serious: Yes (Hospitalization, Other)
  Sender: FDA-Public Use
  Company Number: US-PFIZER INC-2009283661

PATIENT
  Sex: Female
  Weight: 62.585 kg

DRUGS (6)
  1. CHANTIX [Suspect]
     Indication: SMOKING CESSATION THERAPY
     Dosage: 1 MG, 2X/DAY
     Route: 048
     Dates: start: 20090701
  2. LACOSAMIDE [Concomitant]
     Indication: CONVULSION
     Dosage: 150 MG, 2X/DAY
     Route: 048
  3. PREDNISOLONE [Concomitant]
     Indication: SYSTEMIC LUPUS ERYTHEMATOSUS
     Dosage: UNK
  4. PERCOCET [Concomitant]
     Indication: HEADACHE
     Dosage: UNK
     Route: 048
  5. OXYCONTIN [Concomitant]
     Indication: HEADACHE
     Dosage: UNK
  6. OXYCONTIN [Concomitant]
     Indication: LUMBAR SPINAL STENOSIS

REACTIONS (9)
  - AGITATION [None]
  - ANXIETY [None]
  - CONVULSION [None]
  - DIZZINESS [None]
  - INSOMNIA [None]
  - IRRITABILITY [None]
  - NAUSEA [None]
  - PERSONALITY CHANGE [None]
  - VIOLENCE-RELATED SYMPTOM [None]
